FAERS Safety Report 18364681 (Version 1)
Quarter: 2020Q4

REPORT INFORMATION
  Report Type: Spontaneous
  Country: US (occurrence: US)
  Receive Date: 20201009
  Receipt Date: 20201009
  Transmission Date: 20210114
  Serious: No
  Sender: FDA-Public Use
  Company Number: US-PFIZER INC-2020386013

PATIENT
  Age: 71 Year

DRUGS (1)
  1. NICOTROL [Suspect]
     Active Substance: NICOTINE
     Indication: SMOKING CESSATION THERAPY
     Dosage: UNK
     Dates: start: 2007

REACTIONS (4)
  - Chronic obstructive pulmonary disease [Unknown]
  - Restlessness [Unknown]
  - Expired product administered [Unknown]
  - Intentional product misuse [Unknown]
